FAERS Safety Report 6308817-3 (Version None)
Quarter: 2009Q3

REPORT INFORMATION
  Report Type: 
  Country: None (occurrence: None)
  Receive Date: 20090813
  Receipt Date: 20090803
  Transmission Date: 20100115
  Serious: Yes (Hospitalization)
  Sender: FDA-Public Use
  Company Number: JP-GILEAD-2009-0023483

PATIENT
  Age: 23 Year
  Sex: Male

DRUGS (4)
  1. VIREAD [Suspect]
     Indication: HIV INFECTION
     Route: 048
     Dates: start: 20081101
  2. RETROVIR [Suspect]
     Indication: HIV INFECTION
     Route: 048
     Dates: start: 20081101, end: 20090101
  3. REYATAZ [Concomitant]
     Indication: HIV INFECTION
     Dates: start: 20081001
  4. NORVIR [Concomitant]
     Indication: HIV INFECTION
     Dates: start: 20081001

REACTIONS (3)
  - ANAEMIA [None]
  - DECREASED APPETITE [None]
  - DEHYDRATION [None]
